FAERS Safety Report 8842248 (Version 1)
Quarter: 2012Q4

REPORT INFORMATION
  Report Type: Spontaneous
  Country: US (occurrence: None)
  Receive Date: 20121015
  Receipt Date: 20121015
  Transmission Date: 20130627
  Serious: Yes (Hospitalization, Other)
  Sender: FDA-Public Use
  Company Number: None

PATIENT
  Age: 32 Year
  Sex: Male
  Weight: 70.31 kg

DRUGS (1)
  1. CIPRO [Suspect]
     Indication: PROSTATITIS
     Dosage: 500, 2x per day. 30 day, po
     Route: 048
     Dates: start: 20120401, end: 20120501

REACTIONS (7)
  - Myalgia [None]
  - Eye pain [None]
  - Vitreous floaters [None]
  - Neuropathy peripheral [None]
  - Musculoskeletal stiffness [None]
  - Asthenia [None]
  - Headache [None]
